FAERS Safety Report 23597679 (Version 1)
Quarter: 2024Q1

REPORT INFORMATION
  Report Type: Spontaneous
  Country: US (occurrence: US)
  Receive Date: 20240305
  Receipt Date: 20240305
  Transmission Date: 20240410
  Serious: No
  Sender: FDA-Public Use
  Company Number: US-CTI BIOPHARMA-2024US04550

PATIENT

DRUGS (1)
  1. VONJO [Suspect]
     Active Substance: PACRITINIB
     Indication: Marrow hyperplasia
     Dosage: 200 MG, BID
     Route: 048
     Dates: start: 20240213

REACTIONS (5)
  - Nasopharyngitis [Recovered/Resolved]
  - Full blood count increased [Unknown]
  - Poor quality sleep [Unknown]
  - Nausea [Unknown]
  - Diarrhoea [Unknown]
